FAERS Safety Report 4923968-3 (Version None)
Quarter: 2006Q1

REPORT INFORMATION
  Report Type: 
  Country: None (occurrence: None)
  Receive Date: 20060227
  Receipt Date: 20051013
  Transmission Date: 20060701
  Serious: Yes (Hospitalization, Disabling)
  Sender: FDA-Public Use
  Company Number: PR-MERCK-0510USA07303

PATIENT
  Age: 47 Year
  Sex: Male
  Weight: 105 kg

DRUGS (7)
  1. VIOXX [Suspect]
     Indication: BACK PAIN
     Route: 048
     Dates: start: 20010201, end: 20041001
  2. VIOXX [Suspect]
     Route: 048
     Dates: start: 20010101, end: 20030101
  3. CELEBREX [Concomitant]
     Route: 065
  4. NEURONTIN [Concomitant]
     Route: 065
  5. ASPIRIN [Concomitant]
     Route: 065
  6. NORFLEX [Concomitant]
     Route: 065
  7. PLAVIX [Concomitant]
     Route: 065
     Dates: start: 20031104

REACTIONS (10)
  - ANGINA PECTORIS [None]
  - BACK PAIN [None]
  - CHEST PAIN [None]
  - CORONARY ARTERY DISEASE [None]
  - HYPERHIDROSIS [None]
  - HYPERTENSION [None]
  - HYPOAESTHESIA [None]
  - MYOCARDIAL INFARCTION [None]
  - MYOCARDIAL ISCHAEMIA [None]
  - SYNCOPE [None]
